FAERS Safety Report 8979623 (Version 1)
Quarter: 2012Q4

REPORT INFORMATION
  Report Type: 
  Country: BR (occurrence: BR)
  Receive Date: 20121221
  Receipt Date: 20121221
  Transmission Date: 20130627
  Serious: Yes (Other)
  Sender: FDA-Public Use
  Company Number: BR-MYLANLABS-2012S1025572

PATIENT
  Age: 74 Year
  Sex: Male

DRUGS (3)
  1. MODAFINIL [Suspect]
     Indication: SOMNOLENCE
     Route: 065
  2. DONEPEZIL [Concomitant]
     Indication: DEMENTIA
     Dosage: 10 mg/day
     Route: 065
  3. MEMANTINE [Concomitant]
     Dosage: titrated to 10mg twice daily
     Route: 065

REACTIONS (2)
  - Dementia with Lewy bodies [Recovering/Resolving]
  - Condition aggravated [Recovering/Resolving]
